FAERS Safety Report 9053186 (Version 3)
Quarter: 2013Q2

REPORT INFORMATION
  Report Type: Spontaneous
  Country: US (occurrence: US)
  Receive Date: 20130208
  Receipt Date: 20130417
  Transmission Date: 20140414
  Serious: No
  Sender: FDA-Public Use
  Company Number: US-BIOGENIDEC-2013BI010405

PATIENT
  Age: 40 Year
  Sex: Female

DRUGS (3)
  1. AVONEX [Suspect]
     Indication: MULTIPLE SCLEROSIS
     Route: 030
     Dates: start: 20100922
  2. FLEXERIL [Concomitant]
     Indication: BACK PAIN
  3. IRON PILLS [Concomitant]
     Indication: BLOOD IRON DECREASED

REACTIONS (8)
  - Stress [Unknown]
  - Nervousness [Recovered/Resolved]
  - Dysarthria [Not Recovered/Not Resolved]
  - Visual impairment [Not Recovered/Not Resolved]
  - General symptom [Recovered/Resolved]
  - Influenza like illness [Recovered/Resolved]
  - Injection site pain [Recovered/Resolved]
  - Anxiety [Recovered/Resolved]
